FAERS Safety Report 5602214-1 (Version None)
Quarter: 2008Q1

REPORT INFORMATION
  Report Type: 
  Country: None (occurrence: None)
  Receive Date: 20080125
  Receipt Date: 20080121
  Transmission Date: 20080703
  Serious: Yes (Hospitalization, Other)
  Sender: FDA-Public Use
  Company Number: PHEH2007US12324

PATIENT
  Age: 55 Year
  Sex: Female
  Weight: 60.77 kg

DRUGS (7)
  1. CELEXA [Concomitant]
     Indication: ANXIETY
     Dosage: 40 MG, QD
     Route: 048
     Dates: start: 19990101
  2. EFFEXOR XR [Concomitant]
     Indication: DEPRESSION
     Dosage: 75 MG, QD
     Route: 048
     Dates: start: 19990101
  3. LEVOTHYROXINE SODIUM [Concomitant]
     Indication: HYPOTHYROIDISM
     Dosage: 0.075 MG, QD
     Route: 048
     Dates: start: 20000101
  4. PREVACID [Concomitant]
     Indication: GASTROOESOPHAGEAL REFLUX DISEASE
     Dosage: 30 MG, QD
     Route: 048
     Dates: start: 19990101
  5. GABAPENTIN [Concomitant]
  6. TEGRETOL [Suspect]
     Indication: NERVOUS SYSTEM DISORDER
     Dosage: 250 MG, TID
     Route: 048
     Dates: start: 19820101, end: 20070601
  7. MECLIZINE [Concomitant]
     Indication: DIZZINESS
     Dosage: 25 MG, PRN
     Route: 048
     Dates: start: 19990101

REACTIONS (8)
  - ANXIETY [None]
  - DEPRESSION [None]
  - DIZZINESS [None]
  - GASTROOESOPHAGEAL REFLUX DISEASE [None]
  - HYPERPLASIA [None]
  - HYPOTHYROIDISM [None]
  - LYMPHADENECTOMY [None]
  - LYMPHADENOPATHY [None]
